FAERS Safety Report 5908873-8 (Version None)
Quarter: 2008Q4

REPORT INFORMATION
  Report Type: 
  Country: None (occurrence: None)
  Receive Date: 20081006
  Receipt Date: 20081001
  Transmission Date: 20090506
  Serious: Yes (Death)
  Sender: FDA-Public Use
  Company Number: IN-ASTRAZENECA-2008AC02615

PATIENT
  Age: 16 Year
  Sex: Female

DRUGS (2)
  1. BUPIVACAINE [Suspect]
     Indication: ANAESTHESIA
     Route: 037
  2. ALPRAZOLAM [Concomitant]

REACTIONS (1)
  - SYNCOPE [None]
